FAERS Safety Report 24215809 (Version 1)
Quarter: 2024Q3

REPORT INFORMATION
  Report Type: Spontaneous
  Country: US (occurrence: US)
  Receive Date: 20240816
  Receipt Date: 20240816
  Transmission Date: 20241016
  Serious: Yes (Hospitalization)
  Sender: STRIDES
  Company Number: US-STRIDES ARCOLAB LIMITED-2024SP005015

PATIENT
  Age: 16 Year
  Sex: Female

DRUGS (6)
  1. LISINOPRIL [Suspect]
     Active Substance: LISINOPRIL
     Indication: Neuropsychiatric lupus
     Dosage: UNK
     Route: 065
  2. OLANZAPINE [Suspect]
     Active Substance: OLANZAPINE
     Indication: Parkinson^s disease
     Dosage: UNK
     Route: 065
  3. RISPERIDONE [Concomitant]
     Active Substance: RISPERIDONE
     Indication: Neuropsychiatric lupus
     Dosage: UNK
     Route: 065
  4. ARIPIPRAZOLE [Concomitant]
     Active Substance: ARIPIPRAZOLE
     Indication: Neuropsychiatric lupus
     Dosage: UNK
     Route: 065
  5. ARIPIPRAZOLE [Concomitant]
     Active Substance: ARIPIPRAZOLE
     Dosage: UNK (DOSE REDUCED)
     Route: 065
  6. BENZTROPINE [Concomitant]
     Active Substance: BENZTROPINE
     Indication: Parkinson^s disease
     Dosage: UNK
     Route: 065

REACTIONS (2)
  - Angioedema [Recovered/Resolved]
  - Off label use [Unknown]
